FAERS Safety Report 8114591-0 (Version None)
Quarter: 2012Q1

REPORT INFORMATION
  Report Type: 
  Country: None (occurrence: None)
  Receive Date: 20120206
  Receipt Date: 20120130
  Transmission Date: 20120608
  Serious: Yes (Other)
  Sender: FDA-Public Use
  Company Number: US-PFIZER INC-2012027374

PATIENT
  Sex: Female
  Weight: 78 kg

DRUGS (2)
  1. ADDERALL 5 [Suspect]
     Indication: DISTURBANCE IN ATTENTION
     Dosage: 20 MG, 3X/DAY
  2. EFFEXOR XR [Suspect]
     Indication: DEPRESSION
     Dosage: 150 MG, DAILY
     Dates: start: 20080401, end: 20120127

REACTIONS (2)
  - WEIGHT INCREASED [None]
  - DRUG INEFFECTIVE [None]
